FAERS Safety Report 8463104-2 (Version None)
Quarter: 2012Q2

REPORT INFORMATION
  Report Type: 
  Country: None (occurrence: None)
  Receive Date: 20120625
  Receipt Date: 20120611
  Transmission Date: 20120825
  Serious: Yes (Other)
  Sender: FDA-Public Use
  Company Number: CN-BAYER-2012-057664

PATIENT
  Age: 40 Year
  Sex: Female

DRUGS (1)
  1. CLOTRIMAZOLE [Suspect]
     Indication: VAGINAL DISCHARGE
     Dosage: 1 DF, ONCE
     Route: 067
     Dates: start: 20120603

REACTIONS (3)
  - GENITAL BURNING SENSATION [None]
  - ABDOMINAL DISCOMFORT [None]
  - VAGINAL HAEMORRHAGE [None]
